FAERS Safety Report 21700490 (Version 1)
Quarter: 2022Q4

REPORT INFORMATION
  Report Type: Spontaneous
  Country: VN (occurrence: VN)
  Receive Date: 20221208
  Receipt Date: 20221208
  Transmission Date: 20230113
  Serious: Yes (Death, Other)
  Sender: FDA-Public Use
  Company Number: VN-FreseniusKabi-FK202217143

PATIENT
  Age: 2 Year
  Sex: Male

DRUGS (15)
  1. GENTAMICIN SULFATE [Suspect]
     Active Substance: GENTAMICIN SULFATE
     Indication: Cough
     Dates: start: 20221126, end: 20221126
  2. GENTAMICIN SULFATE [Suspect]
     Active Substance: GENTAMICIN SULFATE
     Indication: Pyrexia
  3. GENTAMICIN SULFATE [Suspect]
     Active Substance: GENTAMICIN SULFATE
     Indication: Diarrhoea
  4. METOCLOPRAMIDE HYDROCHLORIDE [Suspect]
     Active Substance: METOCLOPRAMIDE HYDROCHLORIDE
     Indication: Cough
     Dates: start: 20221126, end: 20221126
  5. METOCLOPRAMIDE HYDROCHLORIDE [Suspect]
     Active Substance: METOCLOPRAMIDE HYDROCHLORIDE
     Indication: Pyrexia
  6. METOCLOPRAMIDE HYDROCHLORIDE [Suspect]
     Active Substance: METOCLOPRAMIDE HYDROCHLORIDE
     Indication: Diarrhoea
  7. NIKETHAMIDE [Suspect]
     Active Substance: NIKETHAMIDE
     Indication: Cough
     Dosage: INJECTION 15 MINUTES APART?2 INJECTIONS
     Dates: start: 20221126, end: 20221126
  8. NIKETHAMIDE [Suspect]
     Active Substance: NIKETHAMIDE
     Indication: Pyrexia
  9. NIKETHAMIDE [Suspect]
     Active Substance: NIKETHAMIDE
     Indication: Diarrhoea
  10. LINCOMYCIN HYDROCHLORIDE [Suspect]
     Active Substance: LINCOMYCIN HYDROCHLORIDE
     Indication: Cough
     Dosage: ONE INJECTION
     Dates: start: 20221126
  11. LINCOMYCIN HYDROCHLORIDE [Suspect]
     Active Substance: LINCOMYCIN HYDROCHLORIDE
     Indication: Pyrexia
  12. LINCOMYCIN HYDROCHLORIDE [Suspect]
     Active Substance: LINCOMYCIN HYDROCHLORIDE
     Indication: Diarrhoea
  13. DROTAVERINE HYDROCHLORIDE [Suspect]
     Active Substance: DROTAVERINE HYDROCHLORIDE
     Indication: Cough
     Dosage: ONE INJECTION OF ANTISPASMODIC SMOOTH MUSCLE
     Dates: start: 20221126, end: 20221126
  14. DROTAVERINE HYDROCHLORIDE [Suspect]
     Active Substance: DROTAVERINE HYDROCHLORIDE
     Indication: Pyrexia
  15. DROTAVERINE HYDROCHLORIDE [Suspect]
     Active Substance: DROTAVERINE HYDROCHLORIDE
     Indication: Diarrhoea

REACTIONS (2)
  - Death [Fatal]
  - Asthenia [Unknown]

NARRATIVE: CASE EVENT DATE: 20221126
